FAERS Safety Report 5977547-X (Version None)
Quarter: 2008Q4

REPORT INFORMATION
  Report Type: 
  Country: None (occurrence: None)
  Receive Date: 20081201
  Receipt Date: 20081201
  Transmission Date: 20090506
  Serious: No
  Sender: FDA-Public Use
  Company Number: None

PATIENT
  Age: 46 Year
  Sex: Female
  Weight: 122.4712 kg

DRUGS (1)
  1. LORATADINE [Suspect]

REACTIONS (1)
  - DIZZINESS [None]
